FAERS Safety Report 10165943 (Version 1)
Quarter: 2014Q2

REPORT INFORMATION
  Report Type: Spontaneous
  Country: TN (occurrence: TN)
  Receive Date: 20140510
  Receipt Date: 20140510
  Transmission Date: 20141212
  Serious: Yes (Other)
  Sender: FDA-Public Use
  Company Number: TN-MYLANLABS-2014S1010119

PATIENT
  Age: 61 Year
  Sex: Female

DRUGS (8)
  1. PIROXICAM [Suspect]
     Indication: RENAL COLIC
     Dosage: 20MG/DAY
     Route: 048
  2. PIROXICAM [Suspect]
     Indication: OFF LABEL USE
     Dosage: 20MG/DAY
     Route: 048
  3. CAPTOPRIL [Concomitant]
     Indication: HYPERTENSION
     Route: 065
  4. INDAPAMIDE [Concomitant]
     Indication: HYPERTENSION
     Route: 065
  5. NIFEDIPINE [Concomitant]
     Indication: HYPERTENSION
     Route: 065
  6. GLIBENCLAMIDE [Concomitant]
     Indication: DIABETES MELLITUS
     Route: 065
  7. GLIMEPIRIDE [Concomitant]
     Indication: DIABETES MELLITUS
     Route: 065
  8. SIMVASTATIN [Concomitant]
     Indication: DYSLIPIDAEMIA
     Route: 065

REACTIONS (1)
  - Acute generalised exanthematous pustulosis [Recovered/Resolved]
